FAERS Safety Report 8806355 (Version 2)
Quarter: 2012Q4

REPORT INFORMATION
  Report Type: Spontaneous
  Country: US (occurrence: None)
  Receive Date: 20120919
  Receipt Date: 20121005
  Transmission Date: 20130627
  Serious: Yes (Other)
  Sender: FDA-Public Use
  Company Number: AUR-APL-2012-04042

PATIENT
  Sex: Female
  Weight: 98 kg

DRUGS (14)
  1. CLOPIDOGREL [Suspect]
     Indication: ANTICOAGULANT THERAPY
  2. CLOPIDOGREL [Suspect]
     Indication: ANTICOAGULANT THERAPY
  3. FLUOXETINE [Concomitant]
  4. MIRTAZAPINE [Concomitant]
  5. LEVOTHYROXINE (LEOVTHYROXINE) [Concomitant]
  6. AMLODIPINE (AMLODIPINE) [Concomitant]
  7. BISOPROLOL (BISOPROLOL) [Concomitant]
  8. ASPIRIN (ACETYLSALICYLIC ACID) [Concomitant]
  9. ATORVASTATIN (ATORVASTATIN) [Concomitant]
  10. GLIMEPIRIDE (GLIMEPIRIDE) [Concomitant]
  11. MESALAMINE (MESALAZINE) [Concomitant]
  12. LOSARTAN/HCTZ (HYDROCHLOROTHIAZIDE W/LOSARTAN) [Concomitant]
  13. METFORMIN (METFORMIN) [Concomitant]
  14. ... [Concomitant]

REACTIONS (1)
  - Thrombosis in device [None]
